FAERS Safety Report 18737579 (Version 1)
Quarter: 2021Q1

REPORT INFORMATION
  Report Type: Spontaneous
  Country: US (occurrence: US)
  Receive Date: 20210113
  Receipt Date: 20210113
  Transmission Date: 20210419
  Serious: Yes (Other)
  Sender: FDA-Public Use
  Company Number: US-EPIC PHARMA LLC-2020EPC00292

PATIENT
  Sex: Female

DRUGS (1)
  1. OXYMORPHONE [Suspect]
     Active Substance: OXYMORPHONE
     Dosage: UNK

REACTIONS (1)
  - Dependence [Recovering/Resolving]
